FAERS Safety Report 8500049-3 (Version None)
Quarter: 2012Q3

REPORT INFORMATION
  Report Type: 
  Country: None (occurrence: None)
  Receive Date: 20120710
  Receipt Date: 20120706
  Transmission Date: 20120928
  Serious: No
  Sender: FDA-Public Use
  Company Number: US-BAYER-2012-068192

PATIENT
  Age: 51 Year
  Sex: Female

DRUGS (1)
  1. MAGNEVIST [Suspect]
     Indication: NUCLEAR MAGNETIC RESONANCE IMAGING
     Dosage: 15 ML, UNK
     Route: 042
     Dates: start: 20120613, end: 20120613

REACTIONS (3)
  - DYSPNOEA [None]
  - URTICARIA [None]
  - PRURITUS [None]
